FAERS Safety Report 9075402 (Version 1)
Quarter: 2013Q1

REPORT INFORMATION
  Report Type: Spontaneous
  Country: US (occurrence: US)
  Receive Date: 20130129
  Receipt Date: 20130129
  Transmission Date: 20140127
  Serious: No
  Sender: FDA-Public Use
  Company Number: US-ABBOTT-12P-163-0919844-00

PATIENT
  Sex: 0

DRUGS (1)
  1. HUMIRA 40 MG/ 0.8 ML PRE-FILLED SYRINGE [Suspect]
     Indication: PRODUCT USED FOR UNKNOWN INDICATION

REACTIONS (10)
  - Musculoskeletal stiffness [Unknown]
  - Headache [Unknown]
  - Swelling [Unknown]
  - Gait disturbance [Unknown]
  - Hypoaesthesia [None]
  - Paraesthesia [Unknown]
  - Pain [Unknown]
  - Liver function test abnormal [Unknown]
  - Mobility decreased [Unknown]
  - Drug effect decreased [Unknown]
